FAERS Safety Report 7280204-3 (Version None)
Quarter: 2011Q1

REPORT INFORMATION
  Report Type: 
  Country: None (occurrence: None)
  Receive Date: 20110208
  Receipt Date: 20110131
  Transmission Date: 20110831
  Serious: Yes (Other)
  Sender: FDA-Public Use
  Company Number: KR-JNJFOC-20101002454

PATIENT
  Age: 49 Year
  Sex: Female

DRUGS (7)
  1. TOPAMAX [Suspect]
     Indication: MIGRAINE PROPHYLAXIS
     Dosage: 1-2 TABLETS/DAY
     Route: 048
  2. ENAFON [Concomitant]
     Indication: MIGRAINE PROPHYLAXIS
     Dosage: 1-2 TABLETS/DAY
     Route: 048
  3. HYDROXYZINE [Concomitant]
     Indication: HYPERSENSITIVITY
     Route: 048
  4. XYZAL [Concomitant]
     Indication: HYPERSENSITIVITY
     Route: 048
  5. UNKNOWN MEDICATION [Concomitant]
     Indication: MIGRAINE
     Route: 048
  6. ULTRACET [Suspect]
     Indication: MIGRAINE
     Dosage: 1-4 TABLETS/(TRMADOL HCL 37.5MG ACETAMINOPHEN 325MG)/PRN
     Route: 048
  7. TOPAMAX [Suspect]
     Dosage: 2-4 TABLETS/DAY
     Route: 048

REACTIONS (8)
  - CALCULUS URINARY [None]
  - WEIGHT DECREASED [None]
  - MUSCLE SPASMS [None]
  - PRURITUS GENERALISED [None]
  - DRUG INEFFECTIVE [None]
  - OEDEMA [None]
  - SENSORY DISTURBANCE [None]
  - POLYMENORRHOEA [None]
